FAERS Safety Report 12500216 (Version 1)
Quarter: 2016Q2

REPORT INFORMATION
  Report Type: Spontaneous
  Country: GB (occurrence: GB)
  Receive Date: 20160627
  Receipt Date: 20160627
  Transmission Date: 20160815
  Serious: Yes (Other)
  Sender: FDA-Public Use
  Company Number: GB-GLAXOSMITHKLINE-GB2016088533

PATIENT
  Age: 68 Year
  Sex: Male
  Weight: 73 kg

DRUGS (2)
  1. COMBODART [Suspect]
     Active Substance: DUTASTERIDE\TAMSULOSIN
     Indication: PROSTATIC DISORDER
     Dosage: 0.5MG/0.4MG
     Route: 065
     Dates: start: 201602, end: 201604
  2. CLARITHROMYCIN. [Suspect]
     Active Substance: CLARITHROMYCIN
     Indication: LUNG INFECTION
     Dosage: 500 MG, UNK
     Route: 065
     Dates: start: 20160326, end: 20160403

REACTIONS (4)
  - Dyspnoea [Recovering/Resolving]
  - Muscle twitching [Recovering/Resolving]
  - Hallucination [Recovering/Resolving]
  - Insomnia [Recovering/Resolving]
